FAERS Safety Report 10441845 (Version 3)
Quarter: 2014Q4

REPORT INFORMATION
  Report Type: Spontaneous
  Country: US (occurrence: US)
  Receive Date: 20140908
  Receipt Date: 20141007
  Transmission Date: 20150528
  Serious: Yes (Hospitalization)
  Sender: FDA-Public Use
  Company Number: US-ACTELION-A-NJ2014-104685

PATIENT
  Age: 28 Year
  Sex: Female
  Weight: 66.7 kg

DRUGS (7)
  1. REVATIO [Concomitant]
     Active Substance: SILDENAFIL CITRATE
  2. OPSUMIT [Suspect]
     Active Substance: MACITENTAN
     Indication: PULMONARY ARTERIAL HYPERTENSION
     Dosage: 10 MG, QD
     Route: 048
     Dates: start: 20140616
  3. METOPROLOL [Concomitant]
     Active Substance: METOPROLOL
     Dosage: 25 MG, BID
     Route: 048
  4. WARFARIN [Concomitant]
     Active Substance: WARFARIN
  5. DIGOXIN. [Concomitant]
     Active Substance: DIGOXIN
     Dosage: .25 MG, QOD
  6. REMODULIN [Concomitant]
     Active Substance: TREPROSTINIL
     Dosage: 85.1 NG/KG, PER MIN
  7. LANTUS [Concomitant]
     Active Substance: INSULIN GLARGINE
     Dosage: 10 UNITS, AT BEDTIME

REACTIONS (6)
  - Presyncope [Unknown]
  - Device occlusion [Unknown]
  - Hypotension [Recovered/Resolved]
  - Dizziness [Unknown]
  - Diarrhoea [Unknown]
  - Device related infection [Recovered/Resolved]
